FAERS Safety Report 11886323 (Version 1)
Quarter: 2016Q1

REPORT INFORMATION
  Report Type: Spontaneous
  Country: US (occurrence: US)
  Receive Date: 20160104
  Receipt Date: 20160104
  Transmission Date: 20160526
  Serious: No
  Sender: FDA-Public Use
  Company Number: US-MORTON GROVE PHARMACEUTICALS, INC.-1046093

PATIENT
  Age: 84 Year
  Sex: Male

DRUGS (4)
  1. FLUTICASONE PROPIONATE NASAL SPRAY USP, 50 MCG/SPRAY [Suspect]
     Active Substance: FLUTICASONE PROPIONATE
     Indication: HYPERSENSITIVITY
     Route: 045
  2. ZYRTEC [Concomitant]
     Active Substance: CETIRIZINE HYDROCHLORIDE
  3. METFORMIN [Concomitant]
     Active Substance: METFORMIN HYDROCHLORIDE
  4. VITAMIN D [Concomitant]
     Active Substance: CHOLECALCIFEROL

REACTIONS (1)
  - Nasal discomfort [Recovered/Resolved]

NARRATIVE: CASE EVENT DATE: 2015
